FAERS Safety Report 24109605 (Version 1)
Quarter: 2024Q3

REPORT INFORMATION
  Report Type: Report from Study
  Country: US (occurrence: None)
  Receive Date: 20240718
  Receipt Date: 20240718
  Transmission Date: 20241017
  Serious: Yes (Other)
  Sender: ASTRAZENECA
  Company Number: 2021A229651

PATIENT
  Age: 74 Year
  Sex: Female
  Weight: 67.6 kg

DRUGS (4)
  1. TAGRISSO [Suspect]
     Active Substance: OSIMERTINIB
     Indication: Lung neoplasm malignant
     Route: 048
     Dates: start: 202102
  2. IRESSA [Suspect]
     Active Substance: GEFITINIB
     Route: 048
  3. FOSFOMYCIN TROMETHAMINE [Concomitant]
     Active Substance: FOSFOMYCIN TROMETHAMINE
  4. OXYGEN [Concomitant]
     Active Substance: OXYGEN

REACTIONS (13)
  - Urinary tract infection [Unknown]
  - Dehydration [Unknown]
  - Diarrhoea [Unknown]
  - Asthenia [Unknown]
  - Somnolence [Unknown]
  - Decreased appetite [Unknown]
  - Fatigue [Unknown]
  - Taste disorder [Unknown]
  - Illness [Unknown]
  - Nausea [Unknown]
  - Weight decreased [Unknown]
  - Cough [Unknown]
  - Blood pressure fluctuation [Unknown]
